FAERS Safety Report 4599359-4 (Version None)
Quarter: 2005Q1

REPORT INFORMATION
  Report Type: 
  Country: None (occurrence: None)
  Receive Date: 20050302
  Receipt Date: 20050302
  Transmission Date: 20050727
  Serious: Yes (Other)
  Sender: FDA-Public Use
  Company Number: None

PATIENT
  Age: 46 Year
  Sex: Male

DRUGS (1)
  1. NEURONTIN [Suspect]
     Indication: NEUROPATHIC PAIN
     Dosage: 300 MG  ONE PO QID
     Route: 048
     Dates: start: 20030604

REACTIONS (2)
  - PHARMACEUTICAL PRODUCT COMPLAINT [None]
  - SYNCOPE [None]
